FAERS Safety Report 4914998-6 (Version None)
Quarter: 2006Q1

REPORT INFORMATION
  Report Type: 
  Country: None (occurrence: None)
  Receive Date: 20060215
  Receipt Date: 20060215
  Transmission Date: 20060701
  Serious: Yes (Hospitalization)
  Sender: FDA-Public Use
  Company Number: None

PATIENT
  Sex: Male
  Weight: 113.3993 kg

DRUGS (3)
  1. AVALIDE [Suspect]
     Indication: HYPERTENSION
     Dosage: PO
     Route: 048
  2. LOTREL [Suspect]
     Indication: HYPERTENSION
     Dosage: PO
     Route: 048
  3. TIMOLOL MALEATE [Concomitant]

REACTIONS (4)
  - DYSARTHRIA [None]
  - HYPOAESTHESIA [None]
  - PARAESTHESIA [None]
  - SWOLLEN TONGUE [None]
